FAERS Safety Report 8050758-8 (Version None)
Quarter: 2012Q1

REPORT INFORMATION
  Report Type: 
  Country: None (occurrence: None)
  Receive Date: 20120117
  Receipt Date: 20120117
  Transmission Date: 20120608
  Serious: No
  Sender: FDA-Public Use
  Company Number: None

PATIENT
  Sex: Male
  Weight: 86.182 kg

DRUGS (1)
  1. LARIAM [Suspect]
     Indication: MALARIA PROPHYLAXIS
     Dates: start: 19930301, end: 19930801

REACTIONS (11)
  - DEPRESSION [None]
  - ARTHRALGIA [None]
  - FIBROMYALGIA [None]
  - ANGER [None]
  - NIGHTMARE [None]
  - MYALGIA [None]
  - MULTIPLE ALLERGIES [None]
  - INSOMNIA [None]
  - PARANOIA [None]
  - SENSORY DISTURBANCE [None]
  - IRRITABLE BOWEL SYNDROME [None]
